FAERS Safety Report 8405278-5 (Version None)
Quarter: 2012Q2

REPORT INFORMATION
  Report Type: 
  Country: None (occurrence: None)
  Receive Date: 20120603
  Receipt Date: 20120522
  Transmission Date: 20120825
  Serious: Yes (Hospitalization, Other)
  Sender: FDA-Public Use
  Company Number: GB-TEVA-339324ISR

PATIENT
  Age: 32 Year
  Sex: Female

DRUGS (2)
  1. OMACOR [Suspect]
     Indication: BLOOD TRIGLYCERIDES INCREASED
     Dosage: 8000 MILLIGRAM;
     Route: 048
  2. METFORMIN HCL [Suspect]
     Indication: BLOOD TRIGLYCERIDES INCREASED
     Dosage: 1000 MILLIGRAM;
     Route: 048

REACTIONS (3)
  - PANCREATITIS [None]
  - PREMATURE LABOUR [None]
  - HYPERGLYCAEMIA [None]
